FAERS Safety Report 5380918-6 (Version None)
Quarter: 2007Q3

REPORT INFORMATION
  Report Type: 
  Country: None (occurrence: None)
  Receive Date: 20070706
  Receipt Date: 20070625
  Transmission Date: 20080115
  Serious: Yes (Hospitalization)
  Sender: FDA-Public Use
  Company Number: US-ELI_LILLY_AND_COMPANY-US200706005686

PATIENT
  Sex: Male

DRUGS (3)
  1. HUMULIN 70/30 [Suspect]
     Dates: start: 20070201
  2. HUMULIN N [Suspect]
     Dates: end: 20070201
  3. HUMALOG [Suspect]
     Dosage: UNK, AS NEEDED
     Dates: start: 20070201

REACTIONS (7)
  - BLOOD GLUCOSE DECREASED [None]
  - BLOOD GLUCOSE INCREASED [None]
  - INCISION SITE INFECTION [None]
  - STENT PLACEMENT [None]
  - SURGICAL PROCEDURE REPEATED [None]
  - TREATMENT FAILURE [None]
  - VASCULAR GRAFT [None]
